FAERS Safety Report 6925409-3 (Version None)
Quarter: 2010Q3

REPORT INFORMATION
  Report Type: 
  Country: None (occurrence: None)
  Receive Date: 20100816
  Receipt Date: 20100805
  Transmission Date: 20110219
  Serious: Yes (Death, Disabling)
  Sender: FDA-Public Use
  Company Number: JP-ROCHE-687158

PATIENT
  Sex: Female
  Weight: 47 kg

DRUGS (13)
  1. AVASTIN [Suspect]
     Indication: COLON CANCER METASTATIC
     Route: 041
  2. AVASTIN [Suspect]
     Route: 041
     Dates: start: 20091116, end: 20100201
  3. XELODA [Suspect]
     Indication: COLON CANCER METASTATIC
     Route: 048
     Dates: start: 20091116, end: 20100201
  4. ELPLAT [Suspect]
     Indication: COLON CANCER METASTATIC
     Route: 041
     Dates: start: 20091116, end: 20100126
  5. LANSOPRAZOLE [Concomitant]
     Dosage: DRUG REPORTED AS STANZOME (LANSOPRAZOLE)
     Route: 048
  6. GASMOTIN [Concomitant]
     Dosage: FORM PERORAL AGENT
     Route: 048
  7. PYRIDOXAL PHOSPHATE [Concomitant]
     Dosage: FORM PERORAL AGENT
     Route: 048
  8. MAGMITT [Concomitant]
     Route: 048
  9. MYSLEE [Concomitant]
     Route: 048
  10. PURSENNID [Concomitant]
     Route: 048
  11. LOXONIN [Concomitant]
     Route: 048
  12. GRANISETRON HYDROCHLORIDE [Concomitant]
     Route: 041
  13. DECADRON [Concomitant]
     Route: 041

REACTIONS (2)
  - CEREBRAL INFARCTION [None]
  - DISEASE PROGRESSION [None]
